FAERS Safety Report 5242626-1 (Version None)
Quarter: 2007Q1

REPORT INFORMATION
  Report Type: 
  Country: None (occurrence: None)
  Receive Date: 20070221
  Receipt Date: 20070216
  Transmission Date: 20070707
  Serious: Yes (Death)
  Sender: FDA-Public Use
  Company Number: GBWYE026618FEB03

PATIENT
  Sex: Male

DRUGS (8)
  1. RAPAMUNE [Suspect]
     Indication: RENAL TRANSPLANT
     Route: 048
     Dates: start: 20021007, end: 20030223
  2. RAPAMUNE [Suspect]
     Indication: IMMUNOSUPPRESSION
  3. MYCOPHENOLATE MOFETIL [Concomitant]
     Dosage: 500MG DAILY
     Route: 048
     Dates: start: 19980803
  4. ATORVASTATIN [Concomitant]
  5. AMIODARONE HYDROCHLORIDE [Concomitant]
     Dosage: 200MG DAILY
     Route: 048
     Dates: start: 19950925
  6. ALFACALCIDOL [Concomitant]
     Dosage: 1.5G DAILY
     Route: 048
     Dates: start: 19950209
  7. PREDNISOLONE [Concomitant]
     Route: 048
     Dates: start: 19950209
  8. NIFEDIPINE [Concomitant]
     Dosage: 80MG DAILY
     Route: 048
     Dates: start: 19950209

REACTIONS (4)
  - CARDIAC FAILURE [None]
  - CARDIAC VALVE DISEASE [None]
  - PNEUMONITIS [None]
  - TRANSPLANT REJECTION [None]
